FAERS Safety Report 23753326 (Version 1)
Quarter: 2024Q2

REPORT INFORMATION
  Report Type: Spontaneous
  Country: US (occurrence: None)
  Receive Date: 20240417
  Receipt Date: 20240417
  Transmission Date: 20240716
  Serious: Yes (Disabling)
  Sender: FDA-Public Use
  Company Number: None

PATIENT
  Age: 58 Year
  Sex: Male
  Weight: 90.72 kg

DRUGS (10)
  1. IXEKIZUMAB [Suspect]
     Active Substance: IXEKIZUMAB
     Indication: Psoriasis
     Dosage: 3 INJECTION STRTED TWO SHOT ONE IN EACH LEG, THEN ONE EVERY TWO WEEKS INJECTION ?
     Route: 050
     Dates: start: 20231123, end: 20240303
  2. ALENDRONATE [Concomitant]
     Active Substance: ALENDRONATE SODIUM
  3. ASPIRIN [Concomitant]
  4. ATORVASTATION [Concomitant]
  5. FLUTICASONE [Concomitant]
  6. OMPRAZOLE [Concomitant]
  7. LOSARTAN [Concomitant]
  8. VALACYCLOVIR [Concomitant]
     Active Substance: VALACYCLOVIR HYDROCHLORIDE
  9. FISH OIL\OMEGA-3 FATTY ACIDS [Concomitant]
     Active Substance: FISH OIL\OMEGA-3 FATTY ACIDS
  10. TEA [Concomitant]
     Active Substance: TEA LEAF

REACTIONS (4)
  - Abdominal pain [None]
  - Pain [None]
  - Tinnitus [None]
  - Therapeutic response unexpected [None]

NARRATIVE: CASE EVENT DATE: 20240118
